FAERS Safety Report 26122713 (Version 1)
Quarter: 2025Q4

REPORT INFORMATION
  Report Type: Spontaneous
  Country: US (occurrence: US)
  Receive Date: 20251204
  Receipt Date: 20251204
  Transmission Date: 20260118
  Serious: No
  Sender: BEIGENE
  Company Number: US-BEONEMEDICINES-BGN-2025-019799

PATIENT

DRUGS (1)
  1. BRUKINSA [Suspect]
     Active Substance: ZANUBRUTINIB
     Indication: Waldenstrom^s macroglobulinaemia

REACTIONS (6)
  - Insomnia [Unknown]
  - Allergy test negative [Unknown]
  - Surgery [Unknown]
  - Back pain [Unknown]
  - Arthralgia [Unknown]
  - Therapy change [Unknown]
